FAERS Safety Report 7708340-5 (Version None)
Quarter: 2011Q3

REPORT INFORMATION
  Report Type: 
  Country: None (occurrence: None)
  Receive Date: 20110825
  Receipt Date: 20090709
  Transmission Date: 20111222
  Serious: No
  Sender: FDA-Public Use
  Company Number: 2009BI021269

PATIENT
  Age: 53 Year
  Sex: Male

DRUGS (1)
  1. TYSABRI [Suspect]
     Indication: MULTIPLE SCLEROSIS
     Route: 042
     Dates: start: 20090604

REACTIONS (5)
  - SKIN LESION [None]
  - DYSARTHRIA [None]
  - POOR VENOUS ACCESS [None]
  - RASH ERYTHEMATOUS [None]
  - INFUSION SITE HAEMATOMA [None]
